FAERS Safety Report 7311584-8 (Version None)
Quarter: 2011Q1

REPORT INFORMATION
  Report Type: 
  Country: None (occurrence: None)
  Receive Date: 20110224
  Receipt Date: 20110215
  Transmission Date: 20110831
  Serious: Yes (Other)
  Sender: FDA-Public Use
  Company Number: JP-ASTRAZENECA-2011SE09251

PATIENT
  Age: 80 Year
  Sex: Female

DRUGS (1)
  1. TENORMIN [Suspect]
     Indication: HYPERTENSION
     Route: 048

REACTIONS (1)
  - BRADYCARDIA [None]
